FAERS Safety Report 8206278-0 (Version None)
Quarter: 2012Q1

REPORT INFORMATION
  Report Type: 
  Country: None (occurrence: None)
  Receive Date: 20120313
  Receipt Date: 20120229
  Transmission Date: 20120608
  Serious: Yes (Hospitalization)
  Sender: FDA-Public Use
  Company Number: PHHO2010FR02264

PATIENT
  Sex: Male
  Weight: 53 kg

DRUGS (3)
  1. EVEROLIMUS [Suspect]
     Indication: LIVER TRANSPLANT
     Dosage: 1 MG, BID
     Route: 048
     Dates: start: 20091026
  2. PREDNISONE TAB [Concomitant]
     Indication: LIVER TRANSPLANT
     Dosage: 10 MG, QD
     Dates: start: 20091027
  3. TACROLIMUS [Suspect]
     Indication: LIVER TRANSPLANT
     Dosage: 0.5 MG, BID
     Route: 048
     Dates: start: 20091026

REACTIONS (3)
  - HEPATITIS C [None]
  - HEPATITIS CHOLESTATIC [None]
  - CONCOMITANT DISEASE PROGRESSION [None]
